FAERS Safety Report 5723695-9 (Version None)
Quarter: 2008Q2

REPORT INFORMATION
  Report Type: 
  Country: None (occurrence: None)
  Receive Date: 20080430
  Receipt Date: 20080428
  Transmission Date: 20081010
  Serious: Yes (Other)
  Sender: FDA-Public Use
  Company Number: SE-RB-009280-08

PATIENT
  Sex: Male

DRUGS (2)
  1. SUBUTEX [Suspect]
     Route: 065
     Dates: start: 20080201
  2. SUBOXONE [Suspect]
     Route: 060
     Dates: start: 20070101, end: 20080101

REACTIONS (3)
  - FATIGUE [None]
  - GRANULOCYTOPENIA [None]
  - NASOPHARYNGITIS [None]
